FAERS Safety Report 8837081 (Version 1)
Quarter: 2012Q4

REPORT INFORMATION
  Report Type: Spontaneous
  Country: US (occurrence: None)
  Receive Date: 20121011
  Receipt Date: 20121011
  Transmission Date: 20130627
  Serious: Yes (Other)
  Sender: FDA-Public Use
  Company Number: None

PATIENT
  Age: 70 Year
  Sex: Male
  Weight: 71.22 kg

DRUGS (2)
  1. CHOLESTYRAMINE [Suspect]
     Indication: DIARRHEA
     Route: 048
     Dates: start: 19900101, end: 20121010
  2. CHOLESTYRAMINE [Suspect]
     Indication: MALABSORPTION
     Route: 048
     Dates: start: 19900101, end: 20121010

REACTIONS (7)
  - Diarrhoea [None]
  - Nausea [None]
  - Abdominal pain [None]
  - Drug effect decreased [None]
  - Product substitution issue [None]
  - Product taste abnormal [None]
  - Product solubility abnormal [None]
